FAERS Safety Report 7331988-7 (Version None)
Quarter: 2011Q1

REPORT INFORMATION
  Report Type: 
  Country: None (occurrence: None)
  Receive Date: 20110304
  Receipt Date: 20100524
  Transmission Date: 20110831
  Serious: Yes (Other)
  Sender: FDA-Public Use
  Company Number: US-PFIZER INC-2010065552

PATIENT
  Sex: Male

DRUGS (1)
  1. CAVERJECT [Suspect]
     Dosage: 20 UG, UNK

REACTIONS (2)
  - PAINFUL ERECTION [None]
  - ERECTION INCREASED [None]
